FAERS Safety Report 7554948-X (Version None)
Quarter: 2011Q2

REPORT INFORMATION
  Report Type: 
  Country: None (occurrence: None)
  Receive Date: 20110617
  Receipt Date: 20110608
  Transmission Date: 20111010
  Serious: Yes (Hospitalization)
  Sender: FDA-Public Use
  Company Number: US-JNJFOC-20110511443

PATIENT
  Age: 47 Year
  Sex: Female
  Weight: 50.8 kg

DRUGS (2)
  1. BENADRYL [Suspect]
     Indication: HYPERSENSITIVITY
     Route: 042
     Dates: start: 20110511, end: 20110511
  2. BENADRYL [Suspect]
     Route: 042

REACTIONS (6)
  - NASAL ODOUR [None]
  - SENSATION OF FOREIGN BODY [None]
  - SENSORY DISTURBANCE [None]
  - OFF LABEL USE [None]
  - DYSPNOEA [None]
  - COUGH [None]
